FAERS Safety Report 17521631 (Version 1)
Quarter: 2020Q1

REPORT INFORMATION
  Report Type: Spontaneous
  Country: US (occurrence: US)
  Receive Date: 20200310
  Receipt Date: 20200310
  Transmission Date: 20200409
  Serious: Yes (Other)
  Sender: FDA-Public Use
  Company Number: US-PFIZER INC-2020103735

PATIENT
  Age: 72 Year
  Sex: Male

DRUGS (1)
  1. INLYTA [Suspect]
     Active Substance: AXITINIB
     Indication: MALIGNANT NEOPLASM OF RENAL PELVIS
     Dosage: 3 MG, 2X/DAY

REACTIONS (3)
  - Anaemia [Unknown]
  - Hypertension [Unknown]
  - Diabetes mellitus [Unknown]
